FAERS Safety Report 13682223 (Version 1)
Quarter: 2017Q2

REPORT INFORMATION
  Report Type: Spontaneous
  Country: US (occurrence: US)
  Receive Date: 20170623
  Receipt Date: 20170623
  Transmission Date: 20170830
  Serious: No
  Sender: FDA-Public Use
  Company Number: US-IPSEN BIOPHARMACEUTICALS, INC.-2016-06148

PATIENT
  Sex: Female
  Weight: 88 kg

DRUGS (23)
  1. LEVOTHYROXINE. [Concomitant]
     Active Substance: LEVOTHYROXINE
  2. PROGESTERONE. [Concomitant]
     Active Substance: PROGESTERONE
  3. ESTROGEN [Concomitant]
     Active Substance: ESTROGENS
  4. DYSPORT [Suspect]
     Active Substance: ABOBOTULINUMTOXINA
     Indication: SKIN WRINKLING
     Dosage: 22 U
     Route: 065
     Dates: start: 20140129, end: 20140129
  5. DYSPORT [Suspect]
     Active Substance: ABOBOTULINUMTOXINA
     Dosage: 74 U
     Route: 065
     Dates: start: 20150813, end: 20150813
  6. BOTOX [Concomitant]
     Active Substance: ONABOTULINUMTOXINA
  7. VITAMIN E [Concomitant]
     Active Substance: .ALPHA.-TOCOPHEROL
  8. DYSPORT [Suspect]
     Active Substance: ABOBOTULINUMTOXINA
     Indication: SKIN WRINKLING
     Dosage: 41 U
     Route: 065
     Dates: start: 20140108, end: 20140108
  9. CYTOMEL [Concomitant]
     Active Substance: LIOTHYRONINE SODIUM
  10. VITAMIN D [Concomitant]
     Active Substance: CHOLECALCIFEROL
  11. DYSPORT [Suspect]
     Active Substance: ABOBOTULINUMTOXINA
     Dosage: 19 U
     Route: 065
     Dates: start: 20151007, end: 20151007
  12. RETIN-A [Concomitant]
     Active Substance: TRETINOIN
  13. VITAMIN B [Concomitant]
     Active Substance: VITAMIN B
  14. DYSPORT [Suspect]
     Active Substance: ABOBOTULINUMTOXINA
     Indication: PRODUCT USE IN UNAPPROVED INDICATION
     Dosage: 67.5 U
     Route: 065
     Dates: start: 20141002, end: 20141002
  15. DYSPORT [Suspect]
     Active Substance: ABOBOTULINUMTOXINA
     Dosage: 33.5 U
     Route: 065
     Dates: start: 20150729, end: 20150729
  16. DYSPORT [Suspect]
     Active Substance: ABOBOTULINUMTOXINA
     Dosage: 43 U
     Route: 065
     Dates: start: 20160316, end: 20160316
  17. DYSPORT [Suspect]
     Active Substance: ABOBOTULINUMTOXINA
     Dosage: 23 U
     Route: 065
     Dates: start: 20160406, end: 20160406
  18. DYSPORT [Suspect]
     Active Substance: ABOBOTULINUMTOXINA
     Dosage: 65 UNITS
     Route: 065
     Dates: start: 20160607, end: 20160607
  19. FISH OIL [Concomitant]
     Active Substance: FISH OIL
  20. DYSPORT [Suspect]
     Active Substance: ABOBOTULINUMTOXINA
     Indication: SKIN WRINKLING
     Dosage: 40 U
     Route: 065
     Dates: start: 20140703, end: 20140703
  21. TRETINOIN. [Concomitant]
     Active Substance: TRETINOIN
     Route: 061
  22. TESTOSTERONE. [Concomitant]
     Active Substance: TESTOSTERONE
  23. DYSPORT [Suspect]
     Active Substance: ABOBOTULINUMTOXINA
     Dosage: 66.5 U
     Route: 065
     Dates: start: 20150610, end: 20150610

REACTIONS (4)
  - Inappropriate schedule of drug administration [Unknown]
  - Drug ineffective [Unknown]
  - Wrong technique in product usage process [Unknown]
  - Overdose [Unknown]
